FAERS Safety Report 21159331 (Version 4)
Quarter: 2022Q3

REPORT INFORMATION
  Report Type: Spontaneous
  Country: US (occurrence: US)
  Receive Date: 20220802
  Receipt Date: 20220822
  Transmission Date: 20221027
  Serious: Yes (Other)
  Sender: FDA-Public Use
  Company Number: US-GSK-US2022GSK113569

PATIENT

DRUGS (2)
  1. WELLBUTRIN XL [Suspect]
     Active Substance: BUPROPION HYDROCHLORIDE
     Indication: Depression
     Dosage: 150 MG, QD
     Route: 048
     Dates: start: 2021
  2. WELLBUTRIN XL [Suspect]
     Active Substance: BUPROPION HYDROCHLORIDE
     Indication: Ill-defined disorder

REACTIONS (12)
  - Cataract [Unknown]
  - Suicidal ideation [Recovering/Resolving]
  - General physical health deterioration [Unknown]
  - Visual impairment [Unknown]
  - Halo vision [Unknown]
  - Inflammation [Unknown]
  - Vision blurred [Unknown]
  - Insomnia [Recovered/Resolved]
  - Aggression [Recovered/Resolved]
  - Irritability [Unknown]
  - Product label issue [Unknown]
  - Confusional state [Recovered/Resolved]

NARRATIVE: CASE EVENT DATE: 20210101
